FAERS Safety Report 5403942-3 (Version None)
Quarter: 2007Q3

REPORT INFORMATION
  Report Type: 
  Country: None (occurrence: None)
  Receive Date: 20070802
  Receipt Date: 20070724
  Transmission Date: 20080115
  Serious: Yes (Other)
  Sender: FDA-Public Use
  Company Number: AU-ASTRAZENECA-2007AP04430

PATIENT
  Age: 24748 Day
  Sex: Male
  Weight: 79 kg

DRUGS (2)
  1. NEXIUM [Suspect]
     Indication: OESOPHAGEAL DISORDER
     Route: 048
     Dates: end: 20061228
  2. TERBINAFINE HCL [Suspect]
     Indication: SYSTEMIC MYCOSIS
     Route: 048
     Dates: start: 20061020, end: 20061025

REACTIONS (2)
  - LIVER DISORDER [None]
  - RENAL IMPAIRMENT [None]
